FAERS Safety Report 5166175-4 (Version None)
Quarter: 2006Q4

REPORT INFORMATION
  Report Type: 
  Country: None (occurrence: None)
  Receive Date: 20061129
  Receipt Date: 20061117
  Transmission Date: 20070319
  Serious: Yes (Other)
  Sender: FDA-Public Use
  Company Number: 2006142918

PATIENT
  Age: 28 Year
  Sex: Female

DRUGS (4)
  1. GEODON [Suspect]
     Indication: SCHIZOPHRENIA
     Dosage: 150 MG (150 MG, 1 IN 1 D)
     Dates: start: 20060701
  2. LAMICTAL [Concomitant]
  3. LEXAPRO [Concomitant]
  4. WELLBUTRIN [Concomitant]

REACTIONS (4)
  - FATIGUE [None]
  - HALLUCINATION, AUDITORY [None]
  - PANIC ATTACK [None]
  - SEDATION [None]
